FAERS Safety Report 9472902 (Version 1)
Quarter: 2013Q3

REPORT INFORMATION
  Report Type: Spontaneous
  Country: US (occurrence: US)
  Receive Date: 20130823
  Receipt Date: 20130823
  Transmission Date: 20140515
  Serious: No
  Sender: FDA-Public Use
  Company Number: US-JNJFOC-20130806517

PATIENT
  Age: 51 Year
  Sex: Female

DRUGS (5)
  1. DURAGESIC [Suspect]
     Indication: HEPATIC PAIN
     Route: 062
     Dates: start: 2012
  2. DURAGESIC [Suspect]
     Indication: PAIN
     Route: 062
     Dates: start: 2012
  3. TEGRETOL [Concomitant]
     Indication: PAIN
     Route: 065
  4. VALIUM [Concomitant]
     Route: 065
  5. HYDROCODONE [Concomitant]
     Route: 065

REACTIONS (11)
  - Hyperhidrosis [Not Recovered/Not Resolved]
  - Product quality issue [Unknown]
  - Wrong technique in drug usage process [Not Recovered/Not Resolved]
  - Product quality issue [Not Recovered/Not Resolved]
  - Drug administered at inappropriate site [Not Recovered/Not Resolved]
  - Drug administered at inappropriate site [Not Recovered/Not Resolved]
  - Wrong technique in drug usage process [Not Recovered/Not Resolved]
  - Wrong technique in drug usage process [Not Recovered/Not Resolved]
  - Wrong technique in drug usage process [Not Recovered/Not Resolved]
  - Product quality issue [Unknown]
  - Product packaging quantity issue [Unknown]
